FAERS Safety Report 10034838 (Version 1)
Quarter: 2014Q1

REPORT INFORMATION
  Report Type: Spontaneous
  Country: ZA (occurrence: ZA)
  Receive Date: 20140325
  Receipt Date: 20140325
  Transmission Date: 20141002
  Serious: Yes (Other)
  Sender: FDA-Public Use
  Company Number: ZA-SA-2014SA033516

PATIENT
  Age: 28 Year
  Sex: Female
  Weight: 63 kg

DRUGS (1)
  1. CLEXANE [Suspect]
     Indication: PULMONARY EMBOLISM
     Dosage: STRENGTH: 80MG
     Route: 058
     Dates: start: 20120419, end: 201209

REACTIONS (2)
  - Evacuation of retained products of conception [Recovered/Resolved]
  - Exposure during pregnancy [Unknown]
